FAERS Safety Report 5412535-3 (Version None)
Quarter: 2007Q3

REPORT INFORMATION
  Report Type: 
  Country: None (occurrence: None)
  Receive Date: 20070813
  Receipt Date: 20070807
  Transmission Date: 20080115
  Serious: Yes (Other)
  Sender: FDA-Public Use
  Company Number: B0481063A

PATIENT
  Age: 60 Year
  Sex: Male

DRUGS (10)
  1. FLUTIDE DISKUS [Suspect]
     Indication: DRUG USE FOR UNKNOWN INDICATION
     Dosage: 800MCG UNKNOWN
     Route: 055
     Dates: start: 20070723
  2. INSULIN [Concomitant]
     Route: 058
  3. LANSOPRAZOLE [Concomitant]
     Route: 048
     Dates: start: 20070723
  4. NOVOLIN R [Concomitant]
     Route: 058
  5. NOVOLIN N [Concomitant]
     Route: 058
  6. DEPAS [Concomitant]
     Route: 048
  7. SELBEX [Concomitant]
     Route: 048
  8. LITHIUM CARBONATE [Concomitant]
     Route: 048
  9. LOXONIN [Concomitant]
  10. METHYLCOBAL [Concomitant]

REACTIONS (3)
  - DIZZINESS [None]
  - HYPOGLYCAEMIA [None]
  - SOMNOLENCE [None]
